FAERS Safety Report 8128849-2 (Version None)
Quarter: 2012Q1

REPORT INFORMATION
  Report Type: 
  Country: None (occurrence: None)
  Receive Date: 20120210
  Receipt Date: 20110331
  Transmission Date: 20120608
  Serious: No
  Sender: FDA-Public Use
  Company Number: US-BRISTOL-MYERS SQUIBB COMPANY-15646912

PATIENT
  Sex: Female

DRUGS (1)
  1. ORENCIA [Suspect]
     Dosage: INFUSION OVER DOSE: 750MG IS GIVEN 1 DAY
     Dates: start: 20080701

REACTIONS (4)
  - MEDICATION ERROR [None]
  - DIZZINESS [None]
  - MUSCULOSKELETAL PAIN [None]
  - BACK PAIN [None]
